FAERS Safety Report 15969725 (Version 6)
Quarter: 2021Q1

REPORT INFORMATION
  Report Type: Spontaneous
  Country: US (occurrence: US)
  Receive Date: 20190215
  Receipt Date: 20210305
  Transmission Date: 20210419
  Serious: Yes (Other)
  Sender: FDA-Public Use
  Company Number: US-ASTRAZENECA-2018SF48227

PATIENT
  Age: 22127 Day
  Sex: Female
  Weight: 62.6 kg

DRUGS (20)
  1. PROTONIX [Suspect]
     Active Substance: PANTOPRAZOLE SODIUM
     Indication: GASTROOESOPHAGEAL REFLUX DISEASE
     Dosage: GENERIC
     Route: 065
     Dates: start: 201301
  2. ATORVASTATIN [Concomitant]
     Active Substance: ATORVASTATIN
  3. CETIRIZINE [Concomitant]
     Active Substance: CETIRIZINE HYDROCHLORIDE
  4. METOPROLOL SUCCINATE. [Concomitant]
     Active Substance: METOPROLOL SUCCINATE
  5. XANAX [Concomitant]
     Active Substance: ALPRAZOLAM
  6. PROTONIX [Suspect]
     Active Substance: PANTOPRAZOLE SODIUM
     Indication: GASTROOESOPHAGEAL REFLUX DISEASE
     Dosage: GENERIC
     Route: 065
     Dates: start: 201301, end: 201812
  7. PROTONIX [Suspect]
     Active Substance: PANTOPRAZOLE SODIUM
     Indication: GASTROOESOPHAGEAL REFLUX DISEASE
     Route: 065
     Dates: start: 20160921
  8. ALBUTEROL. [Concomitant]
     Active Substance: ALBUTEROL
  9. NATEGLINIDE. [Concomitant]
     Active Substance: NATEGLINIDE
  10. NEXIUM [Suspect]
     Active Substance: ESOMEPRAZOLE MAGNESIUM
     Indication: GASTROOESOPHAGEAL REFLUX DISEASE
     Route: 048
     Dates: start: 20010220, end: 20131231
  11. NEXIUM [Suspect]
     Active Substance: ESOMEPRAZOLE MAGNESIUM
     Indication: GASTROOESOPHAGEAL REFLUX DISEASE
     Route: 048
     Dates: start: 200103, end: 201312
  12. DOXEPIN [Concomitant]
     Active Substance: DOXEPIN
  13. LOPID [Concomitant]
     Active Substance: GEMFIBROZIL
  14. NORCO [Concomitant]
     Active Substance: ACETAMINOPHEN\HYDROCODONE BITARTRATE
  15. PRILOSEC [Suspect]
     Active Substance: OMEPRAZOLE MAGNESIUM
     Indication: GASTROOESOPHAGEAL REFLUX DISEASE
     Route: 048
     Dates: start: 200301, end: 200312
  16. GABAPENTIN. [Concomitant]
     Active Substance: GABAPENTIN
  17. LEVOTHYROXINE. [Concomitant]
     Active Substance: LEVOTHYROXINE
  18. VITAMIN B1 [Concomitant]
     Active Substance: THIAMINE HYDROCHLORIDE
  19. CYANOCOBALAMIN. [Concomitant]
     Active Substance: CYANOCOBALAMIN
  20. SOMA [Concomitant]
     Active Substance: CARISOPRODOL

REACTIONS (7)
  - Chronic kidney disease [Unknown]
  - Nephrogenic anaemia [Unknown]
  - Renal injury [Unknown]
  - Acute kidney injury [Not Recovered/Not Resolved]
  - Gastrooesophageal reflux disease [Not Recovered/Not Resolved]
  - Renal failure [Unknown]
  - End stage renal disease [Not Recovered/Not Resolved]

NARRATIVE: CASE EVENT DATE: 20160525
